FAERS Safety Report 6232846-1 (Version None)
Quarter: 2009Q2

REPORT INFORMATION
  Report Type: 
  Country: None (occurrence: None)
  Receive Date: 20090617
  Receipt Date: 20080905
  Transmission Date: 20091009
  Serious: No
  Sender: FDA-Public Use
  Company Number: US-ASTRAZENECA-2008UW18419

PATIENT
  Age: 49 Year
  Sex: Female

DRUGS (2)
  1. FASLODEX [Suspect]
     Indication: SARCOMA UTERUS
     Route: 030
  2. LUPRON [Concomitant]

REACTIONS (3)
  - BURNING SENSATION [None]
  - PAIN [None]
  - PARAESTHESIA [None]
